FAERS Safety Report 14757727 (Version 1)
Quarter: 2018Q2

REPORT INFORMATION
  Report Type: Report from Study
  Country: CO (occurrence: CO)
  Receive Date: 20180413
  Receipt Date: 20180413
  Transmission Date: 20180711
  Serious: Yes (Death, Hospitalization, Other)
  Sender: FDA-Public Use
  Company Number: CO-AMGEN-COLSL2017162643

PATIENT
  Age: 67 Year
  Sex: Male

DRUGS (1)
  1. VECTIBIX [Suspect]
     Active Substance: PANITUMUMAB
     Indication: COLORECTAL CANCER METASTATIC
     Dosage: 800 MG, Q2WK
     Route: 042
     Dates: start: 20171002, end: 20180308

REACTIONS (12)
  - Skin abrasion [Not Recovered/Not Resolved]
  - Death [Fatal]
  - Dehydration [Not Recovered/Not Resolved]
  - Rash pustular [Not Recovered/Not Resolved]
  - Blister [Unknown]
  - Xeroderma [Not Recovered/Not Resolved]
  - Onycholysis [Not Recovered/Not Resolved]
  - Skin lesion [Unknown]
  - Nail discolouration [Not Recovered/Not Resolved]
  - Rash generalised [Not Recovered/Not Resolved]
  - Erythema [Unknown]
  - Rash [Not Recovered/Not Resolved]

NARRATIVE: CASE EVENT DATE: 2017
